FAERS Safety Report 5498019-5 (Version None)
Quarter: 2007Q4

REPORT INFORMATION
  Report Type: 
  Country: None (occurrence: None)
  Receive Date: 20071025
  Receipt Date: 20071016
  Transmission Date: 20080405
  Serious: Yes (Hospitalization)
  Sender: FDA-Public Use
  Company Number: US-ELI_LILLY_AND_COMPANY-US200710004658

PATIENT
  Sex: Male

DRUGS (3)
  1. CYMBALTA [Suspect]
     Dosage: 60 MG, DAILY (1/D)
     Route: 048
     Dates: start: 20070801
  2. BYETTA [Concomitant]
  3. CHOLESTEROL [Concomitant]

REACTIONS (4)
  - FALL [None]
  - NAUSEA [None]
  - PYREXIA [None]
  - VOMITING [None]
